FAERS Safety Report 8543426-7 (Version None)
Quarter: 2012Q3

REPORT INFORMATION
  Report Type: 
  Country: None (occurrence: None)
  Receive Date: 20120727
  Receipt Date: 20120723
  Transmission Date: 20120928
  Serious: Yes (Other)
  Sender: FDA-Public Use
  Company Number: PHHY2012FR064358

PATIENT
  Sex: Female

DRUGS (12)
  1. METHOTREXATE [Concomitant]
     Indication: BREAST CANCER
     Dosage: 2.5 MG, UNK
     Dates: start: 20110301, end: 20110701
  2. AROMASIN [Concomitant]
     Indication: BREAST CANCER
     Dosage: 25 MG, UNK
     Dates: start: 20100801, end: 20101001
  3. XELODA [Concomitant]
     Indication: BREAST CANCER
     Dosage: 2000 MG/M2, UNK
     Dates: start: 20090801
  4. ARIMIDEX [Concomitant]
     Indication: BREAST CANCER
     Dosage: UNK UKN, UNK
     Dates: start: 20070701, end: 20090501
  5. ZOMETA [Suspect]
     Dosage: 0.133 MG, QMO
     Route: 042
     Dates: start: 20120213, end: 20120213
  6. FASLODEX [Concomitant]
     Indication: BREAST CANCER
     Dosage: 8.3333MG DAILY OR 250MF MONTHLY INTRAMUSCULAR
     Dates: start: 20090501, end: 20090801
  7. LEVOTHYROXINE SODIUM [Concomitant]
     Indication: HYPOTHYROIDISM
     Dosage: UNK UKN, UNK
     Dates: start: 20090101
  8. TAXOTERE [Concomitant]
     Indication: BREAST CANCER
     Dosage: 75 MG/M2, EACH 21 DAYS FOR 3 COURSES IN TOTAL
     Dates: start: 20110701, end: 20111001
  9. DOXORUBICIN HCL [Concomitant]
     Indication: BREAST CANCER
     Dosage: 2.381 MG/M2, 50MG/M? FOR 3 WEEKS
     Route: 042
     Dates: start: 20111001
  10. ZOMETA [Suspect]
     Dosage: 0.133 MG, QMO
     Route: 042
     Dates: start: 20070701
  11. MEGACE [Concomitant]
     Indication: BREAST CANCER
     Dosage: 160 MG, UNK
     Dates: start: 20101001, end: 20110301
  12. CYCLOPHOSPHAMIDE [Concomitant]
     Indication: BREAST CANCER
     Dosage: UNK UKN, UNK
     Dates: start: 20110301, end: 20110701

REACTIONS (4)
  - OSTEONECROSIS OF JAW [None]
  - BONE FORMATION INCREASED [None]
  - PAIN IN JAW [None]
  - BONE LESION [None]
